FAERS Safety Report 19568275 (Version 1)
Quarter: 2021Q3

REPORT INFORMATION
  Report Type: Spontaneous
  Country: CN (occurrence: CN)
  Receive Date: 20210716
  Receipt Date: 20210716
  Transmission Date: 20211014
  Serious: Yes (Other)
  Sender: FDA-Public Use
  Company Number: CN-PRA-000158

PATIENT
  Age: 6 Year

DRUGS (4)
  1. METHYLPREDNISOLONE. [Suspect]
     Active Substance: METHYLPREDNISOLONE
     Indication: MYOCARDITIS
     Dosage: 200 MG/KG PER DAY
     Route: 042
  2. ISOPRENALINE [Suspect]
     Active Substance: ISOPROTERENOL HYDROCHLORIDE
     Indication: MYOCARDITIS
     Dosage: 0.2 UG/KG/MIN
     Route: 042
  3. METHYLPREDNISOLONE. [Suspect]
     Active Substance: METHYLPREDNISOLONE
     Indication: MYOCARDITIS
     Route: 042
  4. ISOPRENALINE [Suspect]
     Active Substance: ISOPROTERENOL HYDROCHLORIDE
     Indication: MYOCARDITIS
     Dosage: 0.05 MICROGRAM/KILOGRAM/MIN
     Route: 042

REACTIONS (5)
  - Product use in unapproved indication [Unknown]
  - Respiratory arrest [Recovered/Resolved]
  - Cardiac arrest [Recovered/Resolved]
  - Abdominal pain [Recovered/Resolved]
  - Vomiting [Recovered/Resolved]
